FAERS Safety Report 7313545-1 (Version None)
Quarter: 2011Q1

REPORT INFORMATION
  Report Type: 
  Country: None (occurrence: None)
  Receive Date: 20110225
  Receipt Date: 20110218
  Transmission Date: 20110831
  Serious: No
  Sender: FDA-Public Use
  Company Number: US-PFIZER INC-2011036666

PATIENT
  Sex: Female
  Weight: 93 kg

DRUGS (5)
  1. ALPRAZOLAM [Concomitant]
     Indication: ANXIETY
     Dosage: UNK
  2. WARFARIN [Concomitant]
     Indication: ANTICOAGULANT THERAPY
     Dosage: UNK
  3. QUINAPRIL HCL [Suspect]
     Dosage: UNK
  4. VENLAFAXINE HCL [Suspect]
     Indication: DEPRESSION
     Dosage: 75 MG, 1X/DAY
     Route: 048
     Dates: start: 20110129
  5. METOPROLOL [Concomitant]
     Dosage: UNK

REACTIONS (2)
  - INFLUENZA [None]
  - HYPOTENSION [None]
